FAERS Safety Report 9178047 (Version 1)
Quarter: 2013Q1

REPORT INFORMATION
  Report Type: Spontaneous
  Country: CO (occurrence: CO)
  Receive Date: 20130321
  Receipt Date: 20130321
  Transmission Date: 20140127
  Serious: Yes (Hospitalization)
  Sender: FDA-Public Use
  Company Number: CO-UCBSA-081080

PATIENT
  Age: 37 Year
  Sex: Female

DRUGS (5)
  1. CIMZIA [Suspect]
     Indication: RHEUMATOID ARTHRITIS
     Dosage: 1200 MG/4 WEEKS
     Route: 058
     Dates: start: 20121030, end: 20130128
  2. ENALAPRIL [Concomitant]
     Dosage: 50 MG
  3. ARAVA [Concomitant]
     Dosage: 20 MG
  4. HYDROCHLOROTHIAZIDE [Concomitant]
     Dosage: 25 MG
  5. PREDNISOLONE [Concomitant]
     Dosage: 2.5 MG

REACTIONS (2)
  - Respiratory tract infection [Unknown]
  - Overdose [Unknown]
